FAERS Safety Report 5159006-X (Version None)
Quarter: 2006Q4

REPORT INFORMATION
  Report Type: 
  Country: None (occurrence: None)
  Receive Date: 20061117
  Receipt Date: 20061106
  Transmission Date: 20070319
  Serious: Yes (Other)
  Sender: FDA-Public Use
  Company Number: 061108-0001008

PATIENT
  Age: 6 Year
  Sex: Male

DRUGS (2)
  1. DACTINOMYCIN [Suspect]
     Indication: ASTROCYTOMA
     Dosage: 15 UG/KG; QD;
  2. VINCRISTINE [Suspect]
     Indication: ASTROCYTOMA
     Dosage: 1.5 MG/M**2; QW;

REACTIONS (5)
  - CONVULSION [None]
  - INAPPROPRIATE ANTIDIURETIC HORMONE SECRETION [None]
  - MYELODYSPLASTIC SYNDROME [None]
  - NEUROPATHY PERIPHERAL [None]
  - PYREXIA [None]
